FAERS Safety Report 16639055 (Version 1)
Quarter: 2019Q3

REPORT INFORMATION
  Report Type: Spontaneous
  Country: BE (occurrence: BE)
  Receive Date: 20190726
  Receipt Date: 20190726
  Transmission Date: 20191004
  Serious: Yes (Hospitalization)
  Sender: FDA-Public Use
  Company Number: BE-PFM-2019-08606

PATIENT

DRUGS (3)
  1. VINORELBINE [Suspect]
     Active Substance: VINORELBINE TARTRATE
     Indication: LUNG ADENOCARCINOMA STAGE III
     Route: 065
  2. NIVOLUMAB [Suspect]
     Active Substance: NIVOLUMAB
     Indication: LUNG ADENOCARCINOMA STAGE III
     Route: 065
  3. CISPLATIN. [Suspect]
     Active Substance: CISPLATIN
     Indication: LUNG ADENOCARCINOMA STAGE III
     Route: 065

REACTIONS (3)
  - Systemic lupus erythematosus [Unknown]
  - Decreased appetite [Unknown]
  - Gastrointestinal disorder [Unknown]
